FAERS Safety Report 5474475-3 (Version None)
Quarter: 2007Q4

REPORT INFORMATION
  Report Type: 
  Country: None (occurrence: None)
  Receive Date: 20071002
  Receipt Date: 20070924
  Transmission Date: 20080405
  Serious: Yes (Other)
  Sender: FDA-Public Use
  Company Number: PHBS2007CL15996

PATIENT
  Age: 62 Year
  Sex: Female

DRUGS (4)
  1. ZOLEDRONIC ACID [Suspect]
     Indication: BREAST CANCER METASTATIC
     Dosage: 4 MG/D
  2. ADRIAMYCIN + CYCLOPHOSPHAMIDE [Concomitant]
     Indication: BREAST CANCER METASTATIC
     Dosage: 9MG/500MG/4 MONTHLY
  3. TAXOL [Concomitant]
     Dosage: 2 MONTHLY
  4. AROMASIN [Concomitant]
     Dosage: 25 MG/D

REACTIONS (7)
  - BONE DISORDER [None]
  - GINGIVAL BLEEDING [None]
  - OSTEONECROSIS [None]
  - PERIODONTITIS [None]
  - PRIMARY SEQUESTRUM [None]
  - SEQUESTRECTOMY [None]
  - WOUND DEBRIDEMENT [None]
